FAERS Safety Report 4798321-6 (Version None)
Quarter: 2005Q4

REPORT INFORMATION
  Report Type: 
  Country: None (occurrence: None)
  Receive Date: 20051014
  Receipt Date: 20050916
  Transmission Date: 20060501
  Serious: Yes (Death, Other)
  Sender: FDA-Public Use
  Company Number: 2005UW13792

PATIENT
  Age: 28 Year
  Sex: Male

DRUGS (2)
  1. SEROQUEL [Suspect]
     Dosage: AN UNKNOWN QUANTITY CRUSHED AND PUT INTO BEER
     Route: 048
     Dates: start: 20050828, end: 20050828
  2. BEER [Suspect]
     Dosage: DRANK 2 BEERS
     Route: 048
     Dates: start: 20050828, end: 20050828

REACTIONS (5)
  - DIZZINESS [None]
  - DRUG TOXICITY [None]
  - LOSS OF CONSCIOUSNESS [None]
  - OVERDOSE [None]
  - VICTIM OF CRIME [None]
